FAERS Safety Report 7296573-4 (Version None)
Quarter: 2011Q1

REPORT INFORMATION
  Report Type: 
  Country: None (occurrence: None)
  Receive Date: 20110216
  Receipt Date: 20110207
  Transmission Date: 20110831
  Serious: Yes (Other)
  Sender: FDA-Public Use
  Company Number: PHHY2010FR76413

PATIENT
  Sex: Male
  Weight: 72 kg

DRUGS (7)
  1. MYFORTIC [Suspect]
     Indication: RENAL TRANSPLANT
     Dosage: 360 MG, QID
     Route: 048
     Dates: start: 20070501
  2. TAHOR [Concomitant]
     Dosage: 10 MG
  3. STILNOX [Concomitant]
  4. TAREG [Concomitant]
     Dosage: 80 MG
  5. PROGRAF [Concomitant]
     Dosage: 4 MG, BID
     Route: 048
  6. LEXOMIL [Concomitant]
  7. TEGRETOL [Concomitant]
     Dosage: 400 MG, UNK

REACTIONS (2)
  - VIITH NERVE PARALYSIS [None]
  - PARALYSIS FLACCID [None]
